FAERS Safety Report 5298852-9 (Version None)
Quarter: 2007Q2

REPORT INFORMATION
  Report Type: 
  Country: None (occurrence: None)
  Receive Date: 20070417
  Receipt Date: 20070403
  Transmission Date: 20071010
  Serious: Yes (Hospitalization, Other)
  Sender: FDA-Public Use
  Company Number: US-ELI_LILLY_AND_COMPANY-US200704001018

PATIENT
  Age: 63 Year
  Sex: Male

DRUGS (3)
  1. FORTEO [Suspect]
     Indication: OSTEOPOROSIS
     Dosage: 20 UG, DAILY (1/D)
  2. CALCIUM [Concomitant]
     Indication: OSTEOPOROSIS
     Dosage: 1000 MG, DAILY (1/D)
  3. TEGRETOL [Concomitant]

REACTIONS (3)
  - AMNESIA [None]
  - THERAPEUTIC AGENT TOXICITY [None]
  - TRIGEMINAL NEURALGIA [None]
